FAERS Safety Report 9140146 (Version 2)
Quarter: 2013Q1

REPORT INFORMATION
  Report Type: Report from Study
  Country: PL (occurrence: PL)
  Receive Date: 20130305
  Receipt Date: 20130327
  Transmission Date: 20140127
  Serious: Yes (Hospitalization)
  Sender: FDA-Public Use
  Company Number: PL-ASTELLAS-2013US002374

PATIENT
  Age: 10 Year
  Sex: Male
  Weight: 32 kg

DRUGS (6)
  1. TACROLIMUS OINTMENT [Suspect]
     Indication: DERMATITIS ATOPIC
     Dosage: 0.03 %, BID
     Route: 061
     Dates: start: 20101018
  2. TACROLIMUS OINTMENT [Suspect]
     Dosage: 0.03 %, ONCE A DAY, TWICE WEEKLY
     Route: 061
     Dates: start: 20110422
  3. TRIDERM                            /00031902/ [Concomitant]
     Indication: DERMATITIS ATOPIC
     Dosage: UNK
     Route: 061
     Dates: start: 20120830
  4. LATICORT [Concomitant]
     Indication: DERMATITIS ATOPIC
     Dosage: UNK
     Route: 061
     Dates: start: 20120907
  5. ARGOSULFAN [Concomitant]
     Indication: DERMATITIS ATOPIC
     Dosage: UNK
     Route: 061
     Dates: start: 20120909
  6. UNGUENTUM MERCK [Concomitant]
     Indication: DERMATITIS ATOPIC
     Dosage: 5 %, BID
     Route: 061
     Dates: start: 20120805

REACTIONS (1)
  - Dermatitis atopic [Recovered/Resolved]
